FAERS Safety Report 25111902 (Version 4)
Quarter: 2025Q3

REPORT INFORMATION
  Report Type: Spontaneous
  Country: NZ (occurrence: NZ)
  Receive Date: 20250324
  Receipt Date: 20250704
  Transmission Date: 20251021
  Serious: Yes (Other)
  Sender: CSL BEHRING
  Company Number: NZ-BEH-2025199786

PATIENT
  Age: 55 Year
  Weight: 72 kg

DRUGS (15)
  1. HIZENTRA [Suspect]
     Active Substance: HUMAN IMMUNOGLOBULIN G
     Indication: Immunodeficiency common variable
     Dosage: 28 G, QMT 8GM, 8GM, 8GM, 4GM (GIVEN WEEKLY)
     Route: 065
     Dates: start: 20231010
  2. HIZENTRA [Suspect]
     Active Substance: HUMAN IMMUNOGLOBULIN G
     Dosage: 28 G, QMT 8GM, 8GM, 8GM, 4GM (GIVEN WEEKLY)
     Route: 058
     Dates: start: 20241206
  3. HIZENTRA [Suspect]
     Active Substance: HUMAN IMMUNOGLOBULIN G
     Dosage: 28 G, QMT 8GM, 8GM, 8GM, 4GM (GIVEN WEEKLY)
     Route: 058
     Dates: start: 20241106
  4. HIZENTRA [Suspect]
     Active Substance: HUMAN IMMUNOGLOBULIN G
     Dosage: 28 G, QMT 8GM, 8GM, 8GM, 4GM (GIVEN WEEKLY)
     Route: 058
     Dates: start: 20241003
  5. HIZENTRA [Suspect]
     Active Substance: HUMAN IMMUNOGLOBULIN G
     Dosage: 28 G, QMT 8GM, 8GM, 8GM, 4GM (GIVEN WEEKLY)
     Route: 058
     Dates: start: 20240711
  6. HIZENTRA [Suspect]
     Active Substance: HUMAN IMMUNOGLOBULIN G
     Dosage: 28 G, QMT 8GM, 8GM, 8GM, 4GM (GIVEN WEEKLY)
     Route: 058
     Dates: start: 20240419
  7. HIZENTRA [Suspect]
     Active Substance: HUMAN IMMUNOGLOBULIN G
     Dosage: 28 G, QMT 8GM, 8GM, 8GM, 4GM (GIVEN WEEKLY)
     Route: 058
     Dates: start: 20240419
  8. HIZENTRA [Suspect]
     Active Substance: HUMAN IMMUNOGLOBULIN G
     Dosage: 28 G, QMT 8GM, 8GM, 8GM, 4GM (GIVEN WEEKLY)
     Route: 058
     Dates: start: 20240111
  9. HIZENTRA [Suspect]
     Active Substance: HUMAN IMMUNOGLOBULIN G
     Dosage: 28 G, QMT 8GM, 8GM, 8GM, 4GM (GIVEN WEEKLY)
     Route: 058
     Dates: start: 20231101
  10. HIZENTRA [Suspect]
     Active Substance: HUMAN IMMUNOGLOBULIN G
     Dosage: 28 G, QMT 8GM, 8GM, 8GM, 4GM (GIVEN WEEKLY)
     Route: 058
     Dates: start: 20231024
  11. HIZENTRA [Suspect]
     Active Substance: HUMAN IMMUNOGLOBULIN G
     Dosage: 28 G, QMT 8GM, 8GM, 8GM, 4GM (GIVEN WEEKLY)
     Route: 058
     Dates: start: 20231017
  12. HIZENTRA [Suspect]
     Active Substance: HUMAN IMMUNOGLOBULIN G
     Dosage: 28 G, QMT 8GM, 8GM, 8GM, 4GM (GIVEN WEEKLY)
     Route: 058
     Dates: start: 20231010
  13. HIZENTRA [Suspect]
     Active Substance: HUMAN IMMUNOGLOBULIN G
     Dosage: 28 G, QMT 8GM, 8GM, 8GM, 4GM (GIVEN WEEKLY)
     Route: 058
     Dates: start: 20250313
  14. HIZENTRA [Suspect]
     Active Substance: HUMAN IMMUNOGLOBULIN G
     Dosage: 28 G, QMT 8GM, 8GM, 8GM, 4GM (GIVEN WEEKLY)
     Route: 058
     Dates: start: 20231010, end: 20250318
  15. ESTRIOL [Concomitant]
     Active Substance: ESTRIOL
     Indication: Vulvovaginal dryness
     Dosage: 500 ?G, OVER 3 MONTHS, TWICE PER WEEK
     Route: 067

REACTIONS (5)
  - Retinal vascular occlusion [Unknown]
  - Retinal haemorrhage [Unknown]
  - Retinal vascular occlusion [Unknown]
  - Retinal haemorrhage [Unknown]
  - Therapy interrupted [Unknown]

NARRATIVE: CASE EVENT DATE: 20250210
